FAERS Safety Report 7642204-0 (Version None)
Quarter: 2011Q3

REPORT INFORMATION
  Report Type: 
  Country: None (occurrence: None)
  Receive Date: 20110728
  Receipt Date: 20110727
  Transmission Date: 20111222
  Serious: Yes (Other)
  Sender: FDA-Public Use
  Company Number: IL-PFIZER INC-2011161512

PATIENT
  Age: 83 Year
  Sex: Male

DRUGS (6)
  1. MONONIT [Concomitant]
  2. CRESTOR [Concomitant]
  3. PROSCAR [Concomitant]
  4. CAPTOPRIL [Concomitant]
  5. OMEPRADEX [Concomitant]
  6. TOLTERODINE TARTRATE [Suspect]
     Indication: URGE INCONTINENCE
     Dosage: 4 MG, 1X/DAY
     Route: 048
     Dates: start: 20110101

REACTIONS (3)
  - CONSTIPATION [None]
  - MEMORY IMPAIRMENT [None]
  - VISION BLURRED [None]
